FAERS Safety Report 23287379 (Version 1)
Quarter: 2023Q4

REPORT INFORMATION
  Report Type: Spontaneous
  Country: US (occurrence: US)
  Receive Date: 20231212
  Receipt Date: 20231212
  Transmission Date: 20240110
  Serious: No
  Sender: FDA-Public Use
  Company Number: US-APOTEX-2023AP017131

PATIENT
  Age: 71 Year
  Sex: Female

DRUGS (6)
  1. RISPERIDONE [Interacting]
     Active Substance: RISPERIDONE
     Indication: Psychotic symptom
     Dosage: 0.5 MILLIGRAM, QD
     Route: 065
  2. RISPERIDONE [Interacting]
     Active Substance: RISPERIDONE
     Dosage: 0.5 MILLIGRAM, BID
     Route: 065
  3. MEMANTINE [Interacting]
     Active Substance: MEMANTINE
     Indication: Dementia
     Dosage: UNK
     Route: 065
  4. MEMANTINE [Interacting]
     Active Substance: MEMANTINE
     Dosage: TITRATED UP TO 10 MG 2 TIMES/DAY
     Route: 065
  5. QUETIAPINE [Concomitant]
     Active Substance: QUETIAPINE
     Indication: Psychotic symptom
     Dosage: TITRATED UPTO 25 MG AT BEDTIME
     Route: 065
  6. QUETIAPINE [Concomitant]
     Active Substance: QUETIAPINE
     Indication: Condition aggravated

REACTIONS (3)
  - Drug interaction [Unknown]
  - Cognitive disorder [Unknown]
  - Oedema peripheral [Recovered/Resolved]
